FAERS Safety Report 13452647 (Version 3)
Quarter: 2017Q2

REPORT INFORMATION
  Report Type: Report from Study
  Country: None (occurrence: NL)
  Receive Date: 20170418
  Receipt Date: 20170503
  Transmission Date: 20170830
  Serious: Yes (Disabling)
  Sender: FDA-Public Use
  Company Number: NL-ABBVIE-17K-114-1944010-00

PATIENT
  Age: 73 Year
  Sex: Male
  Weight: 44 kg

DRUGS (2)
  1. SYMMETREL [Concomitant]
     Active Substance: AMANTADINE HYDROCHLORIDE
     Indication: PRODUCT USED FOR UNKNOWN INDICATION
  2. DUODOPA [Suspect]
     Active Substance: CARBIDOPA\LEVODOPA
     Indication: PARKINSON^S DISEASE
     Dosage: MD: 4.8, CD:6.9, ED: 3.0, ND: 3.3, EXTRA DOSE AT NIGHT: 0.8
     Route: 050
     Dates: start: 20161011

REACTIONS (20)
  - Loss of control of legs [Not Recovered/Not Resolved]
  - Weight decreased [Not Recovered/Not Resolved]
  - Confusional state [Not Recovered/Not Resolved]
  - Adverse event [Unknown]
  - Balance disorder [Not Recovered/Not Resolved]
  - Drug use disorder [Recovered/Resolved]
  - Dystonia [Not Recovered/Not Resolved]
  - Stoma site discharge [Recovering/Resolving]
  - Restlessness [Not Recovered/Not Resolved]
  - On and off phenomenon [Not Recovered/Not Resolved]
  - Gait disturbance [Not Recovered/Not Resolved]
  - Therapeutic response shortened [Not Recovered/Not Resolved]
  - Fatigue [Not Recovered/Not Resolved]
  - Fibroma [Not Recovered/Not Resolved]
  - Spinal pain [Recovered/Resolved]
  - Dopamine dysregulation syndrome [Not Recovered/Not Resolved]
  - Muscle contracture [Not Recovered/Not Resolved]
  - Spinal compression fracture [Unknown]
  - Muscle spasms [Not Recovered/Not Resolved]
  - Hyperkinesia [Not Recovered/Not Resolved]

NARRATIVE: CASE EVENT DATE: 201704
